FAERS Safety Report 21757478 (Version 1)
Quarter: 2022Q4

REPORT INFORMATION
  Report Type: Spontaneous
  Country: US (occurrence: US)
  Receive Date: 20221221
  Receipt Date: 20221221
  Transmission Date: 20230113
  Serious: No
  Sender: FDA-Public Use
  Company Number: US-PHARMAESSENTIA CORPORATION-US-2022-PEC-000922

PATIENT

DRUGS (1)
  1. BESREMI [Suspect]
     Active Substance: ROPEGINTERFERON ALFA-2B-NJFT
     Indication: Product used for unknown indication
     Dosage: 500 MCG, Q2W
     Route: 065

REACTIONS (5)
  - Tremor [Unknown]
  - Myalgia [Unknown]
  - Arthralgia [Unknown]
  - Oropharyngeal pain [Unknown]
  - Headache [Unknown]
